FAERS Safety Report 5605993-2 (Version None)
Quarter: 2008Q1

REPORT INFORMATION
  Report Type: 
  Country: None (occurrence: None)
  Receive Date: 20080123
  Receipt Date: 20080123
  Transmission Date: 20080703
  Serious: Yes (Other)
  Sender: FDA-Public Use
  Company Number: None

PATIENT
  Age: 48 Year
  Sex: Female
  Weight: 56.6996 kg

DRUGS (1)
  1. XYXAL   5 [Suspect]
     Indication: HYPERSENSITIVITY
     Dosage: 5    Q24 HRS  PO
     Route: 048
     Dates: start: 20080108, end: 20080114

REACTIONS (2)
  - EAR DISORDER [None]
  - TINNITUS [None]
